FAERS Safety Report 4501551-1 (Version None)
Quarter: 2004Q3

REPORT INFORMATION
  Report Type: 
  Country: None (occurrence: None)
  Receive Date: 20040928
  Receipt Date: 20040827
  Transmission Date: 20050211
  Serious: No
  Sender: FDA-Public Use
  Company Number: 04P-163-0271706-00

PATIENT
  Age: 57 Year
  Sex: Female
  Weight: 54.4316 kg

DRUGS (5)
  1. HUMIRA [Suspect]
     Indication: RHEUMATOID ARTHRITIS
     Dosage: 1 IN 2 WK, SUBCUTANEOUS
     Route: 058
     Dates: start: 20040701
  2. HYDROXYCHLOROQUINE SULFATE [Concomitant]
  3. CELECOXIB [Concomitant]
  4. CO-DIOVAN [Concomitant]
  5. FLUOXETINE HYDROCHLORIDE [Concomitant]

REACTIONS (3)
  - DRUG INEFFECTIVE [None]
  - INJECTION SITE ERYTHEMA [None]
  - PRURITUS [None]
